FAERS Safety Report 5870158-6 (Version None)
Quarter: 2008Q3

REPORT INFORMATION
  Report Type: 
  Country: None (occurrence: None)
  Receive Date: 20080904
  Receipt Date: 20080825
  Transmission Date: 20090109
  Serious: Yes (Death)
  Sender: FDA-Public Use
  Company Number: HU-PFIZER INC-2008070815

PATIENT
  Sex: Female
  Weight: 95 kg

DRUGS (14)
  1. IRINOTECAN HCL [Suspect]
     Indication: COLORECTAL CANCER METASTATIC
     Route: 042
     Dates: start: 20080212, end: 20080721
  2. BLINDED SU11248 (SU011248) [Suspect]
     Indication: COLORECTAL CANCER METASTATIC
     Route: 048
     Dates: start: 20080212, end: 20080715
  3. FLUOROURACIL [Suspect]
     Indication: COLORECTAL CANCER METASTATIC
     Route: 042
     Dates: start: 20080212, end: 20080721
  4. CALCIUM FOLINATE [Suspect]
     Indication: COLORECTAL CANCER METASTATIC
     Route: 042
     Dates: start: 20080212, end: 20080721
  5. LEVOTHYROXINE SODIUM [Concomitant]
     Route: 048
  6. ATENOLOL [Concomitant]
     Route: 048
  7. GLIBENCLAMIDE [Concomitant]
     Route: 048
  8. AMILORIDE HYDROCHLORIDE [Concomitant]
     Route: 048
  9. METHYLPREDNISOLONE 16MG TAB [Concomitant]
     Route: 048
  10. TRAMADOL HCL [Concomitant]
     Route: 048
  11. BETAHISTINE [Concomitant]
     Route: 048
  12. FENOFIBRATE [Concomitant]
     Route: 048
  13. TOLPERISONE [Concomitant]
     Route: 048
  14. NAFTIDROFURYL [Concomitant]
     Route: 048

REACTIONS (1)
  - CARDIAC FAILURE [None]
